FAERS Safety Report 6251509-X (Version None)
Quarter: 2009Q2

REPORT INFORMATION
  Report Type: 
  Country: None (occurrence: None)
  Receive Date: 20090626
  Receipt Date: 20090626
  Transmission Date: 20091009
  Serious: No
  Sender: FDA-Public Use
  Company Number: None

PATIENT
  Age: 43 Year
  Sex: Male
  Weight: 147.419 kg

DRUGS (1)
  1. ZICAM GEL SWAB [Suspect]
     Indication: NASOPHARYNGITIS
     Dosage: AS PRESCRIBED; FEW MONTHS
     Dates: start: 20090201, end: 20090415

REACTIONS (1)
  - ANOSMIA [None]
